FAERS Safety Report 9394875 (Version 1)
Quarter: 2013Q3

REPORT INFORMATION
  Report Type: Report from Study
  Country: SG (occurrence: SG)
  Receive Date: 20130711
  Receipt Date: 20130711
  Transmission Date: 20140515
  Serious: Yes (Other)
  Sender: FDA-Public Use
  Company Number: SG-JNJFOC-20130510892

PATIENT
  Age: 38 Year
  Sex: Female

DRUGS (6)
  1. DOXORUBICIN HYDROCHLORIDE (CAELYX) [Suspect]
     Indication: BREAST CANCER METASTATIC
     Route: 042
  2. DOXORUBICIN HYDROCHLORIDE (CAELYX) [Suspect]
     Indication: BREAST CANCER METASTATIC
     Route: 042
  3. DOXORUBICIN HYDROCHLORIDE (CAELYX) [Suspect]
     Indication: BREAST CANCER METASTATIC
     Dosage: 10 ML VIALS; 20 MG OF DOXORUBICIN HYDROCHLORIDE OVER 1 HOUR ON DAY 1 OF A 21-DAY CYCLE
     Route: 042
  4. GEMZAR [Suspect]
     Indication: BREAST CANCER METASTATIC
     Dosage: AS HCL SALT, MANNITOL AND NA-ACETATE, 30 MIN ON DAYS 1 AND 8 OF 21 DAY CYCLE
     Route: 042
  5. GEMZAR [Suspect]
     Indication: BREAST CANCER METASTATIC
     Dosage: AS HCL SALT, MANNITOL AND NA-ACETATE, 30 MIN ON DAYS 1 AND 8 OF 21 DAY CYCLE
     Route: 042
  6. GEMZAR [Suspect]
     Indication: BREAST CANCER METASTATIC
     Dosage: VIALS OF 200/1000 MG
     Route: 042

REACTIONS (1)
  - Breast cancer metastatic [Recovered/Resolved]
